FAERS Safety Report 10668890 (Version 3)
Quarter: 2015Q1

REPORT INFORMATION
  Report Type: Report from Study
  Country: US (occurrence: US)
  Receive Date: 20141222
  Receipt Date: 20150320
  Transmission Date: 20150720
  Serious: Yes (Other)
  Sender: FDA-Public Use
  Company Number: US-BAYER-2014-166619

PATIENT
  Age: 76 Year
  Sex: Male

DRUGS (5)
  1. STIVARGA [Suspect]
     Active Substance: REGORAFENIB
     Indication: RECTAL CANCER STAGE IV
     Dosage: 160 MG, DAILY
     Route: 048
     Dates: start: 20140901, end: 20141101
  2. LASIX [Concomitant]
     Active Substance: FUROSEMIDE
     Dosage: UNK
     Dates: start: 20141114, end: 20141114
  3. STIVARGA [Suspect]
     Active Substance: REGORAFENIB
     Indication: RECTAL CANCER STAGE IV
     Dosage: 160 MG, DAILY
     Route: 048
     Dates: start: 20141125, end: 20141201
  4. LOPRESSOR [Concomitant]
     Active Substance: METOPROLOL TARTRATE
     Dosage: 12.5 DAILY
     Dates: start: 20141125, end: 20141125
  5. BENICAR [Concomitant]
     Active Substance: OLMESARTAN MEDOXOMIL
     Dosage: 40 DAILY
     Dates: start: 20141125, end: 20141125

REACTIONS (11)
  - Generalised oedema [None]
  - Fatigue [None]
  - Cardiac failure congestive [None]
  - Oedema peripheral [None]
  - Haemorrhage [Not Recovered/Not Resolved]
  - Decreased appetite [None]
  - Genital swelling [Not Recovered/Not Resolved]
  - Palmar-plantar erythrodysaesthesia syndrome [None]
  - Pharyngeal ulceration [Not Recovered/Not Resolved]
  - Rectal haemorrhage [Not Recovered/Not Resolved]
  - Blood pressure increased [Not Recovered/Not Resolved]

NARRATIVE: CASE EVENT DATE: 201411
